FAERS Safety Report 6424921-3 (Version None)
Quarter: 2009Q4

REPORT INFORMATION
  Report Type: 
  Country: None (occurrence: None)
  Receive Date: 20091102
  Receipt Date: 20091102
  Transmission Date: 20100525
  Serious: Yes (Death)
  Sender: FDA-Public Use
  Company Number: None

PATIENT
  Age: 65 Year

DRUGS (2)
  1. CLOPIDOGREL [Suspect]
     Indication: CORONARY ARTERIAL STENT INSERTION
     Dosage: 75 MG EVERY DAY PO
     Route: 048
     Dates: start: 20081204
  2. OMEPRAZOLE [Suspect]
     Indication: GASTROOESOPHAGEAL REFLUX DISEASE
     Dosage: 40 MG BID PO
     Route: 048
     Dates: start: 20081020

REACTIONS (4)
  - AGITATION [None]
  - CARDIAC ARREST [None]
  - EYE ROLLING [None]
  - PULSE ABSENT [None]
